FAERS Safety Report 18476616 (Version 1)
Quarter: 2020Q4

REPORT INFORMATION
  Report Type: Other
  Country: GB (occurrence: GB)
  Receive Date: 20201107
  Receipt Date: 20201107
  Transmission Date: 20210114
  Serious: Yes (Other)
  Sender: FDA-Public Use
  Company Number: GB-EMCURE PHARMACEUTICALS LTD-2020-EPL-001767

PATIENT
  Age: 39 Year
  Sex: Male
  Weight: 111.13 kg

DRUGS (5)
  1. VORTIOXETINE. [Suspect]
     Active Substance: VORTIOXETINE
     Indication: ANXIETY
     Dosage: 10 MILLIGRAM
     Route: 048
     Dates: start: 20170101
  2. LURASIDONE HYDROCHLORIDE. [Suspect]
     Active Substance: LURASIDONE HYDROCHLORIDE
     Indication: PSYCHOTIC DISORDER
     Dosage: 37 MILLIGRAM
     Route: 048
     Dates: start: 20170101
  3. PARACETAMOL [Concomitant]
     Active Substance: ACETAMINOPHEN
     Dosage: UNK
  4. METFORMIN [Suspect]
     Active Substance: METFORMIN HYDROCHLORIDE
     Indication: WEIGHT INCREASED
     Dosage: 500 MILLIGRAM
     Route: 048
     Dates: start: 20170101
  5. COD-LIVER OIL [Concomitant]
     Active Substance: COD LIVER OIL
     Dosage: UNK

REACTIONS (3)
  - Tinnitus [Not Recovered/Not Resolved]
  - Hair colour changes [Not Recovered/Not Resolved]
  - Off label use [Unknown]

NARRATIVE: CASE EVENT DATE: 20181122
